FAERS Safety Report 15977971 (Version 3)
Quarter: 2019Q3

REPORT INFORMATION
  Report Type: Spontaneous
  Country: EE (occurrence: EE)
  Receive Date: 20190218
  Receipt Date: 20190904
  Transmission Date: 20191004
  Serious: Yes (Hospitalization, Other)
  Sender: FDA-Public Use
  Company Number: EE-SUN PHARMACEUTICAL INDUSTRIES LTD-2019R1-199494

PATIENT

DRUGS (5)
  1. BETAMETHASONE. [Concomitant]
     Active Substance: BETAMETHASONE
     Dosage: SINGLE DOSE
     Route: 064
  2. DIGOXIN. [Suspect]
     Active Substance: DIGOXIN
     Indication: FOETAL TACHYARRHYTHMIA
     Dosage: 0.75 MG X 2
     Route: 064
  3. BETAMETHASONE. [Concomitant]
     Active Substance: BETAMETHASONE
     Indication: MATERNAL THERAPY TO ENHANCE FOETAL LUNG MATURITY
     Dosage: UNK
     Route: 064
  4. AMIODARONE [Suspect]
     Active Substance: AMIODARONE
     Indication: FOETAL TACHYARRHYTHMIA
     Dosage: 200 MG X 3
     Route: 064
  5. DIGOXIN. [Suspect]
     Active Substance: DIGOXIN
     Dosage: LOWERED TO 0.25 MG PER DAY
     Route: 064

REACTIONS (4)
  - Foetal exposure during pregnancy [Unknown]
  - Tachycardia foetal [Recovered/Resolved]
  - Premature baby [Unknown]
  - Hydrops foetalis [Unknown]
